FAERS Safety Report 21052342 (Version 1)
Quarter: 2022Q3

REPORT INFORMATION
  Report Type: Spontaneous
  Country: US (occurrence: None)
  Receive Date: 20220706
  Receipt Date: 20220706
  Transmission Date: 20221027
  Serious: Yes (Other)
  Sender: FDA-Public Use
  Company Number: None

PATIENT
  Age: 75 Year
  Sex: Female
  Weight: 49.05 kg

DRUGS (9)
  1. NARATRIPTAN [Suspect]
     Active Substance: NARATRIPTAN HYDROCHLORIDE
     Indication: Migraine
     Dosage: FREQUENCY : EVERY 12 HOURS;?
     Route: 048
  2. TOPIRAMATE [Concomitant]
     Active Substance: TOPIRAMATE
  3. METOPROLOL [Concomitant]
     Active Substance: METOPROLOL
  4. ALLOPURINOL [Concomitant]
     Active Substance: ALLOPURINOL
  5. Klorcon M20 [Concomitant]
  6. CHOLECALCIFEROL [Concomitant]
     Active Substance: CHOLECALCIFEROL
  7. MAGNESIUM [Concomitant]
     Active Substance: MAGNESIUM
  8. SIMETHICONE (DIMETHICONE) [Concomitant]
     Active Substance: DIMETHICONE
  9. VITAMINS [Concomitant]
     Active Substance: VITAMINS

REACTIONS (6)
  - Decreased appetite [None]
  - Nausea [None]
  - Vomiting [None]
  - Retching [None]
  - Arthralgia [None]
  - Abdominal pain [None]

NARRATIVE: CASE EVENT DATE: 20220704
